FAERS Safety Report 14233093 (Version 1)
Quarter: 2017Q4

REPORT INFORMATION
  Report Type: Spontaneous
  Country: TR (occurrence: TR)
  Receive Date: 20171129
  Receipt Date: 20171129
  Transmission Date: 20180321
  Serious: Yes (Other)
  Sender: FDA-Public Use
  Company Number: TR-NOVOPROD-574670

PATIENT
  Age: 36 Year
  Sex: Female
  Weight: 80 kg

DRUGS (8)
  1. LEVEMIR [Concomitant]
     Active Substance: INSULIN DETEMIR
     Indication: TYPE 2 DIABETES MELLITUS
     Dosage: 28 U, QD
     Route: 058
     Dates: start: 20170125, end: 201703
  2. ESTROFEM [Suspect]
     Active Substance: ESTRADIOL CYPIONATE
     Indication: IN VITRO FERTILISATION
     Dosage: 6 MG, QD
     Route: 048
     Dates: start: 20170103, end: 201703
  3. PROGESTAN [Concomitant]
     Active Substance: PROGESTERONE
     Dosage: 800 MG, QD
     Route: 048
     Dates: start: 20170103, end: 201703
  4. OKSAPAR [Concomitant]
     Indication: THROMBOSIS
     Dosage: 1X1
     Route: 058
     Dates: start: 20170103, end: 201703
  5. FOLIDOCE [Concomitant]
     Active Substance: CYANOCOBALAMIN\FOLIC ACID
     Indication: VITAMIN SUPPLEMENTATION
     Dosage: 1X1
     Route: 048
     Dates: start: 20170103, end: 201703
  6. CROXILEX [Concomitant]
     Indication: ANTIBIOTIC THERAPY
     Dosage: 1000 MG, QD
     Route: 048
     Dates: start: 20170123, end: 20170128
  7. NOVORAPID [Concomitant]
     Active Substance: INSULIN ASPART
     Indication: TYPE 2 DIABETES MELLITUS
     Dosage: 18 U, QD
     Route: 058
     Dates: start: 20170125, end: 201703
  8. PROGESTAN [Concomitant]
     Active Substance: PROGESTERONE
     Indication: IN VITRO FERTILISATION
     Dosage: 1X1
     Route: 030
     Dates: start: 20170103, end: 201703

REACTIONS (3)
  - Exposure during pregnancy [Recovered/Resolved]
  - Abortion [Unknown]
  - Product use issue [Recovered/Resolved]

NARRATIVE: CASE EVENT DATE: 20170103
